FAERS Safety Report 4367539-9 (Version None)
Quarter: 2004Q2

REPORT INFORMATION
  Report Type: 
  Country: None (occurrence: None)
  Receive Date: 20040601
  Receipt Date: 20031226
  Transmission Date: 20050107
  Serious: Yes (Hospitalization)
  Sender: FDA-Public Use
  Company Number: JP-MERCK-0401USA00143

PATIENT
  Age: 63 Year
  Sex: Male

DRUGS (13)
  1. CALCIUM CARBIMIDE [Suspect]
     Indication: ALCOHOLISM
     Route: 048
     Dates: start: 20010101, end: 20030411
  2. ALESION [Concomitant]
     Indication: ECZEMA
     Route: 048
     Dates: start: 19991001, end: 20030411
  3. PEPCID [Suspect]
     Indication: GASTRIC ULCER
     Route: 048
     Dates: start: 19980101, end: 19991030
  4. PEPCID [Suspect]
     Route: 048
     Dates: start: 19991214, end: 19991224
  5. PEPCID [Suspect]
     Route: 048
     Dates: start: 20000120, end: 20000206
  6. PEPCID [Suspect]
     Route: 048
     Dates: start: 20000301, end: 20000308
  7. PEPCID [Suspect]
     Route: 048
     Dates: start: 20000401, end: 20000531
  8. PEPCID [Suspect]
     Route: 048
     Dates: start: 20000901, end: 20000925
  9. PEPCID [Suspect]
     Route: 048
     Dates: start: 20001006, end: 20001206
  10. PEPCID [Suspect]
     Route: 048
     Dates: start: 20001219, end: 20001226
  11. PEPCID [Suspect]
     Route: 048
     Dates: start: 20010106, end: 20030411
  12. MEVALOTIN [Concomitant]
     Indication: HYPERLIPIDAEMIA
     Route: 048
     Dates: start: 19991001, end: 20030411
  13. ACECOL [Concomitant]
     Route: 065

REACTIONS (4)
  - APLASTIC ANAEMIA [None]
  - ECZEMA [None]
  - HYPERLIPIDAEMIA [None]
  - PANCYTOPENIA [None]
